FAERS Safety Report 23113872 (Version 1)
Quarter: 2023Q4

REPORT INFORMATION
  Report Type: Spontaneous
  Country: FR (occurrence: FR)
  Receive Date: 20231027
  Receipt Date: 20231027
  Transmission Date: 20240110
  Serious: Yes (Hospitalization)
  Sender: FDA-Public Use
  Company Number: None

PATIENT
  Age: 35 Year
  Sex: Female

DRUGS (4)
  1. ROCURONIUM BROMIDE [Suspect]
     Active Substance: ROCURONIUM BROMIDE
     Indication: Surgery
     Route: 042
     Dates: start: 2023, end: 2023
  2. PROPOFOL [Suspect]
     Active Substance: PROPOFOL
     Indication: Surgery
     Route: 042
     Dates: start: 2023, end: 2023
  3. ROPIVACAINE HYDROCHLORIDE [Suspect]
     Active Substance: ROPIVACAINE HYDROCHLORIDE
     Indication: Surgery
     Route: 042
     Dates: start: 2023, end: 2023
  4. SUFENTANIL [Suspect]
     Active Substance: SUFENTANIL
     Indication: Surgery
     Route: 042
     Dates: start: 2023, end: 2023

REACTIONS (1)
  - Anaphylactic reaction [Recovered/Resolved]

NARRATIVE: CASE EVENT DATE: 20230101
